FAERS Safety Report 5728602-0 (Version None)
Quarter: 2008Q2

REPORT INFORMATION
  Report Type: 
  Country: None (occurrence: None)
  Receive Date: 20080506
  Receipt Date: 20080425
  Transmission Date: 20081010
  Serious: Yes (Life-Threatening)
  Sender: FDA-Public Use
  Company Number: SE-JNJFOC-20080406530

PATIENT
  Age: 37 Year
  Sex: Female

DRUGS (4)
  1. PROPULSID [Suspect]
     Indication: DRUG USE FOR UNKNOWN INDICATION
     Route: 065
  2. AZITROMAX [Concomitant]
     Indication: RESPIRATORY TRACT INFECTION
     Route: 065
  3. TAVEGYL [Concomitant]
     Indication: MULTIPLE ALLERGIES
     Route: 065
  4. ACETYLSALICYLIC ACID SRT [Concomitant]
     Route: 065

REACTIONS (2)
  - CARDIAC ARREST [None]
  - RESPIRATORY TRACT INFECTION [None]
